FAERS Safety Report 15757953 (Version 1)
Quarter: 2018Q4

REPORT INFORMATION
  Report Type: Spontaneous
  Country: FR (occurrence: FR)
  Receive Date: 20181225
  Receipt Date: 20181225
  Transmission Date: 20190205
  Serious: Yes (Death, Hospitalization)
  Sender: FDA-Public Use
  Company Number: FR-ACCORD-097483

PATIENT
  Age: 81 Year
  Sex: Male

DRUGS (10)
  1. ONBREZ BREEZHALER [Concomitant]
     Active Substance: INDACATEROL
  2. PRAVASTATIN. [Suspect]
     Active Substance: PRAVASTATIN
     Indication: PRODUCT USED FOR UNKNOWN INDICATION
     Route: 048
  3. PURINETHOL [Suspect]
     Active Substance: MERCAPTOPURINE
     Indication: MYELOFIBROSIS
     Route: 048
     Dates: start: 20170710, end: 20170725
  4. VALSARTAN. [Concomitant]
     Active Substance: VALSARTAN
  5. PARIET [Concomitant]
     Active Substance: RABEPRAZOLE SODIUM
  6. FOLIC ACID. [Concomitant]
     Active Substance: FOLIC ACID
  7. DILTIAZEM. [Concomitant]
     Active Substance: DILTIAZEM
  8. SPIRIVA [Concomitant]
     Active Substance: TIOTROPIUM BROMIDE MONOHYDRATE
  9. JAKAVI [Suspect]
     Active Substance: RUXOLITINIB
     Route: 048
  10. COUMADINE [Concomitant]
     Active Substance: WARFARIN SODIUM

REACTIONS (3)
  - Interstitial lung disease [Not Recovered/Not Resolved]
  - Idiopathic pulmonary fibrosis [Not Recovered/Not Resolved]
  - Dyspnoea [Not Recovered/Not Resolved]

NARRATIVE: CASE EVENT DATE: 201707
